FAERS Safety Report 7515395-X (Version None)
Quarter: 2011Q2

REPORT INFORMATION
  Report Type: 
  Country: None (occurrence: None)
  Receive Date: 20110601
  Receipt Date: 20110524
  Transmission Date: 20111010
  Serious: Yes (Death)
  Sender: FDA-Public Use
  Company Number: NO-BRISTOL-MYERS SQUIBB COMPANY-15794142

PATIENT

DRUGS (3)
  1. CISPLATIN [Suspect]
     Indication: BONE SARCOMA
     Route: 042
  2. ADRIAMYCIN PFS [Suspect]
     Indication: BONE SARCOMA
  3. METHOTREXATE [Suspect]
     Indication: BONE SARCOMA
     Dosage: 1 DF: 12G/M2 2 CYCLES

REACTIONS (1)
  - DEATH [None]
